FAERS Safety Report 9022497 (Version 3)
Quarter: 2013Q1

REPORT INFORMATION
  Report Type: Spontaneous
  Country: GB (occurrence: GB)
  Receive Date: 20130118
  Receipt Date: 20130308
  Transmission Date: 20140127
  Serious: Yes (Life-Threatening, Hospitalization)
  Sender: FDA-Public Use
  Company Number: PHFR2013GB000675

PATIENT
  Age: 71 None
  Sex: Female

DRUGS (2)
  1. CLOZARIL [Suspect]
     Indication: SCHIZOPHRENIA
     Dosage: 400 MG,
     Route: 048
     Dates: start: 1998
  2. CLOZARIL [Suspect]
     Dosage: UNK
     Dates: start: 20010701

REACTIONS (3)
  - Circulatory collapse [Recovered/Resolved]
  - Coma scale abnormal [Unknown]
  - Mental impairment [Unknown]
